FAERS Safety Report 24828999 (Version 3)
Quarter: 2025Q1

REPORT INFORMATION
  Report Type: Report from Study
  Country: IN (occurrence: IN)
  Receive Date: 20250110
  Receipt Date: 20250223
  Transmission Date: 20250409
  Serious: Yes (Death)
  Sender: ROCHE
  Company Number: IN-ROCHE-10000173290

PATIENT
  Age: 86 Year
  Sex: Male

DRUGS (1)
  1. TECENTRIQ [Suspect]
     Active Substance: ATEZOLIZUMAB
     Indication: Hepatocellular carcinoma
     Route: 042
     Dates: start: 20240415

REACTIONS (5)
  - Disease progression [Unknown]
  - Pain [Unknown]
  - Hepatic neoplasm [Unknown]
  - Renal neoplasm [Unknown]
  - Death [Fatal]

NARRATIVE: CASE EVENT DATE: 20240615
